FAERS Safety Report 8204467-2 (Version None)
Quarter: 2012Q1

REPORT INFORMATION
  Report Type: 
  Country: None (occurrence: None)
  Receive Date: 20120313
  Receipt Date: 20120305
  Transmission Date: 20120608
  Serious: Yes (Hospitalization, Other)
  Sender: FDA-Public Use
  Company Number: JP-CELGENEUS-087-21880-11011438

PATIENT
  Sex: Female
  Weight: 61.2 kg

DRUGS (31)
  1. REVLIMID [Suspect]
     Dosage: 10 MILLIGRAM
     Route: 048
     Dates: start: 20110415, end: 20110428
  2. REVLIMID [Suspect]
     Dosage: 10 MILLIGRAM
     Route: 048
     Dates: start: 20110630, end: 20110713
  3. DEXAMETHASONE ACETATE [Suspect]
     Indication: MYELOMA RECURRENCE
     Dosage: 40 MILLIGRAM
     Route: 048
     Dates: start: 20100805, end: 20100824
  4. DEXAMETHASONE ACETATE [Suspect]
     Dosage: 40 MILLIGRAM
     Route: 048
     Dates: start: 20101021, end: 20101110
  5. DEXAMETHASONE ACETATE [Suspect]
     Dosage: 40 MILLIGRAM
     Route: 048
     Dates: start: 20101118, end: 20101201
  6. DEXAMETHASONE ACETATE [Suspect]
     Dosage: 40 MILLIGRAM
     Route: 048
     Dates: start: 20110415, end: 20110422
  7. LYRICA [Concomitant]
     Dosage: 300 MILLIGRAM
     Route: 048
     Dates: start: 20100805, end: 20110106
  8. OXYCONTIN [Concomitant]
     Indication: MULTIPLE MYELOMA
     Dosage: 200 MILLIGRAM
     Route: 048
     Dates: start: 20100805, end: 20110106
  9. MUCOSOLVAN [Concomitant]
     Dosage: 45 MILLIGRAM
     Route: 048
     Dates: start: 20110324
  10. REVLIMID [Suspect]
     Dosage: 15 MILLIGRAM
     Route: 048
     Dates: start: 20101021, end: 20101110
  11. REVLIMID [Suspect]
     Dosage: 10 MILLIGRAM
     Route: 048
     Dates: start: 20110204, end: 20110217
  12. REVLIMID [Suspect]
     Indication: MYELOMA RECURRENCE
     Dosage: 25 MILLIGRAM
     Route: 048
     Dates: start: 20100805, end: 20100826
  13. DEXAMETHASONE ACETATE [Suspect]
     Dosage: 40 MILLIGRAM
     Route: 048
     Dates: start: 20110701, end: 20110708
  14. WARFARIN SODIUM [Concomitant]
     Indication: PROPHYLAXIS
     Dosage: 15 MILLIGRAM
     Route: 048
     Dates: start: 20100805, end: 20101201
  15. URSO 250 [Concomitant]
     Dosage: 300 MILLIGRAM
     Route: 048
     Dates: start: 20100805
  16. TORSEMIDE [Concomitant]
     Indication: CARDIAC FAILURE
     Dosage: 2 MILLIGRAM
     Route: 048
     Dates: start: 20100805, end: 20110106
  17. LANTUS [Concomitant]
     Indication: DIABETES MELLITUS
     Dosage: 14 UNITS
     Route: 058
     Dates: start: 20110106, end: 20110413
  18. REVLIMID [Suspect]
     Dosage: 15 MILLIGRAM
     Route: 048
     Dates: start: 20101118, end: 20101201
  19. DEXAMETHASONE ACETATE [Suspect]
     Dosage: 40 MILLIGRAM
     Route: 048
     Dates: start: 20110107, end: 20110128
  20. LANSOPRAZOLE [Concomitant]
     Dosage: 15 MILLIGRAM
     Route: 048
     Dates: start: 20100805
  21. MUCODYNE [Concomitant]
     Dosage: 1500 MILLIGRAM
     Route: 048
     Dates: start: 20100805
  22. METHYCOBAL [Concomitant]
     Dosage: 1500 MICROGRAM
     Route: 048
     Dates: start: 20100805
  23. ASPIRIN [Concomitant]
     Indication: PROPHYLAXIS
     Dosage: 100 MILLIGRAM
     Route: 048
     Dates: start: 20110513
  24. REVLIMID [Suspect]
     Dosage: 10 MILLIGRAM
     Route: 048
     Dates: start: 20110107, end: 20110127
  25. REVLIMID [Suspect]
     Dosage: 10 MILLIGRAM
     Route: 048
     Dates: start: 20110602, end: 20110615
  26. LYRICA [Concomitant]
     Dosage: 450 MILLIGRAM
     Route: 048
     Dates: start: 20110106
  27. DEXAMETHASONE ACETATE [Suspect]
     Dosage: 40 MILLIGRAM
     Route: 048
     Dates: start: 20110204, end: 20110211
  28. OXYCONTIN [Concomitant]
     Dosage: 160 MILLIGRAM
     Route: 048
     Dates: start: 20110106
  29. DEXAMETHASONE ACETATE [Suspect]
     Dosage: 40 MILLIGRAM
     Route: 048
     Dates: start: 20110603, end: 20110610
  30. COTRIM [Concomitant]
     Indication: PROPHYLAXIS
     Route: 048
     Dates: start: 20110106
  31. LEVEMIR [Concomitant]
     Indication: DIABETES MELLITUS
     Dosage: 14 UNITS
     Route: 058
     Dates: start: 20110414

REACTIONS (9)
  - ASTHMA [None]
  - PNEUMONIA [None]
  - NEUTROPHIL COUNT DECREASED [None]
  - BRONCHITIS [None]
  - BLOOD CREATININE INCREASED [None]
  - HERPES ZOSTER [None]
  - PLATELET COUNT DECREASED [None]
  - ANAEMIA [None]
  - DEHYDRATION [None]
